FAERS Safety Report 13608545 (Version 2)
Quarter: 2017Q2

REPORT INFORMATION
  Report Type: Spontaneous
  Country: US (occurrence: US)
  Receive Date: 20170602
  Receipt Date: 20170620
  Transmission Date: 20170830
  Serious: Yes (Hospitalization, Other)
  Sender: FDA-Public Use
  Company Number: US-PFM-2017-04326

PATIENT
  Age: 13 Month
  Sex: Female

DRUGS (1)
  1. HEMANGEOL [Suspect]
     Active Substance: PROPRANOLOL HYDROCHLORIDE
     Indication: INFANTILE HAEMANGIOMA
     Dosage: 3.4 ML, BID (2/DAY)
     Route: 048
     Dates: start: 20160527, end: 20170521

REACTIONS (7)
  - Unresponsive to stimuli [Recovered/Resolved]
  - White blood cell count decreased [Recovered/Resolved]
  - Incorrect drug administration duration [Unknown]
  - Blood glucose decreased [Recovered/Resolved]
  - Lethargy [Recovered/Resolved]
  - Viral infection [Unknown]
  - Off label use [Unknown]
